FAERS Safety Report 17148729 (Version 1)
Quarter: 2019Q4

REPORT INFORMATION
  Report Type: Spontaneous
  Country: BR (occurrence: BR)
  Receive Date: 20191213
  Receipt Date: 20191213
  Transmission Date: 20200122
  Serious: Yes (Hospitalization, Disabling, Other)
  Sender: FDA-Public Use
  Company Number: BR-BIOMARINP-000317

PATIENT
  Age: 11 Year
  Sex: Female
  Weight: 49 kg

DRUGS (1)
  1. NAGLAZYME [Suspect]
     Active Substance: GALSULFASE
     Indication: MUCOPOLYSACCHARIDOSIS VI
     Dosage: 20MG,QW
     Route: 041
     Dates: start: 20090205

REACTIONS (5)
  - Intracranial pressure increased [Recovering/Resolving]
  - Hydrocephalus [Unknown]
  - Hypokinesia [Unknown]
  - Hypoaesthesia [Unknown]
  - Cervical spinal stenosis [Recovering/Resolving]

NARRATIVE: CASE EVENT DATE: 20091228
